FAERS Safety Report 10934586 (Version 2)
Quarter: 2016Q1

REPORT INFORMATION
  Report Type: Report from Study
  Country: GT (occurrence: GT)
  Receive Date: 20150320
  Receipt Date: 20160330
  Transmission Date: 20160525
  Serious: Yes (Other)
  Sender: FDA-Public Use
  Company Number: PHHY2015GT032504

PATIENT
  Age: 42 Year
  Sex: Female

DRUGS (1)
  1. GILENYA [Suspect]
     Active Substance: FINGOLIMOD HYDROCHLORIDE
     Indication: PRODUCT USED FOR UNKNOWN INDICATION
     Dosage: 0.5 MG, UNK
     Route: 065

REACTIONS (8)
  - Multiple sclerosis relapse [Unknown]
  - Hypoaesthesia [Unknown]
  - Abasia [Unknown]
  - Asthenia [Unknown]
  - Malaise [Unknown]
  - Dysphagia [Unknown]
  - Oropharyngeal pain [Unknown]
  - Neck mass [Unknown]
